FAERS Safety Report 12234419 (Version 2)
Quarter: 2016Q2

REPORT INFORMATION
  Report Type: Report from Study
  Country: LT (occurrence: LT)
  Receive Date: 20160404
  Receipt Date: 20160411
  Transmission Date: 20160815
  Serious: Yes (Hospitalization)
  Sender: FDA-Public Use
  Company Number: LT-ABBVIE-16K-234-1593974-00

PATIENT
  Sex: Female

DRUGS (1)
  1. HUMIRA [Suspect]
     Active Substance: ADALIMUMAB
     Indication: CROHN^S DISEASE
     Route: 058
     Dates: start: 201402, end: 20160302

REACTIONS (9)
  - Abdominal abscess [Recovering/Resolving]
  - Urine ketone body present [Unknown]
  - Blood urine present [Unknown]
  - Gastrointestinal wall thickening [Recovering/Resolving]
  - Crohn^s disease [Recovering/Resolving]
  - Protein urine present [Unknown]
  - Fluid retention [Unknown]
  - Fistula discharge [Recovering/Resolving]
  - White blood cells urine [Unknown]

NARRATIVE: CASE EVENT DATE: 201602
